FAERS Safety Report 25466396 (Version 1)
Quarter: 2025Q2

REPORT INFORMATION
  Report Type: Report from Study
  Country: US (occurrence: US)
  Receive Date: 20250623
  Receipt Date: 20250623
  Transmission Date: 20250716
  Serious: Yes (Other)
  Sender: ABBVIE
  Company Number: US-ABBVIE-6291732

PATIENT
  Age: 62 Year
  Sex: Male
  Weight: 68 kg

DRUGS (2)
  1. SKYRIZI [Suspect]
     Active Substance: RISANKIZUMAB-RZAA
     Indication: Product used for unknown indication
     Route: 042
     Dates: start: 20250203, end: 20250401
  2. NETTLE [Concomitant]
     Active Substance: URTICA DIOICA POLLEN
     Indication: Product used for unknown indication
     Route: 048

REACTIONS (1)
  - Colitis [Recovering/Resolving]

NARRATIVE: CASE EVENT DATE: 20250101
